FAERS Safety Report 7265902-X (Version None)
Quarter: 2011Q1

REPORT INFORMATION
  Report Type: 
  Country: None (occurrence: None)
  Receive Date: 20110131
  Receipt Date: 20110124
  Transmission Date: 20110831
  Serious: Yes (Other)
  Sender: FDA-Public Use
  Company Number: B0696137A

PATIENT
  Sex: Male

DRUGS (1)
  1. REVOLADE [Suspect]
     Route: 065

REACTIONS (5)
  - BLOOD CREATININE INCREASED [None]
  - KIDNEY SMALL [None]
  - ECHOGRAPHY ABNORMAL [None]
  - ANTINUCLEAR ANTIBODY POSITIVE [None]
  - GLOMERULONEPHRITIS [None]
